FAERS Safety Report 11184182 (Version 3)
Quarter: 2015Q3

REPORT INFORMATION
  Report Type: Spontaneous
  Country: US (occurrence: US)
  Receive Date: 20150612
  Receipt Date: 20150820
  Transmission Date: 20151125
  Serious: No
  Sender: FDA-Public Use
  Company Number: US-PFIZER INC-2015193477

PATIENT
  Age: 73 Year
  Sex: Female
  Weight: 51 kg

DRUGS (8)
  1. NARDIL [Suspect]
     Active Substance: PHENELZINE SULFATE
     Dosage: 15 MG, 2X/DAY
     Dates: start: 20150310, end: 20150311
  2. NARDIL [Suspect]
     Active Substance: PHENELZINE SULFATE
     Dosage: 15 MG, 3X/DAY
     Dates: start: 201407, end: 20141220
  3. LAMICTAL [Suspect]
     Active Substance: LAMOTRIGINE
     Indication: DEPRESSED MOOD
     Dosage: 25 MG, UNK (25 MG 1- 4 TIMES)
     Dates: start: 201407, end: 20141220
  4. NARDIL [Suspect]
     Active Substance: PHENELZINE SULFATE
     Indication: DEPRESSION
     Dosage: 45 MG, DAILY
     Dates: start: 198510
  5. NARDIL [Suspect]
     Active Substance: PHENELZINE SULFATE
     Indication: ANXIETY
     Dosage: 15 MG, 2X/DAY
     Dates: start: 200912, end: 201407
  6. APRODINE [Concomitant]
     Active Substance: PSEUDOEPHEDRINE HYDROCHLORIDE\TRIPROLIDINE HYDROCHLORIDE
     Dosage: UNK
  7. LAMICTAL [Suspect]
     Active Substance: LAMOTRIGINE
     Indication: ANXIETY
  8. OXYCODONE [Concomitant]
     Active Substance: OXYCODONE
     Dosage: UNK
     Dates: start: 201205, end: 201506

REACTIONS (6)
  - Depression [Recovered/Resolved]
  - Drug effect incomplete [Not Recovered/Not Resolved]
  - Weight decreased [Recovered/Resolved]
  - Fall [Unknown]
  - Condition aggravated [Recovered/Resolved]
  - Abdominal pain [Unknown]

NARRATIVE: CASE EVENT DATE: 20150310
